FAERS Safety Report 23692620 (Version 1)
Quarter: 2024Q1

REPORT INFORMATION
  Report Type: Spontaneous
  Country: US (occurrence: None)
  Receive Date: 20240330
  Receipt Date: 20240330
  Transmission Date: 20240409
  Serious: No
  Sender: FDA-Public Use
  Company Number: None

PATIENT
  Sex: Female

DRUGS (2)
  1. OPSUMIT [Suspect]
     Active Substance: MACITENTAN
     Indication: Pulmonary arterial hypertension
     Dosage: FREQUENCY : DAILY;?
     Route: 048
     Dates: start: 202008
  2. UPTRAVI [Concomitant]
     Active Substance: SELEXIPAG

REACTIONS (5)
  - Dyspnoea [None]
  - Oxygen saturation decreased [None]
  - Dizziness [None]
  - Pneumonia [None]
  - Intentional dose omission [None]

NARRATIVE: CASE EVENT DATE: 20240328
